FAERS Safety Report 8447875-7 (Version None)
Quarter: 2012Q2

REPORT INFORMATION
  Report Type: 
  Country: None (occurrence: None)
  Receive Date: 20120612
  Receipt Date: 20120530
  Transmission Date: 20120825
  Serious: Yes (Hospitalization)
  Sender: FDA-Public Use
  Company Number: ACO_29890_2012

PATIENT
  Age: 65 Year
  Sex: Female

DRUGS (1)
  1. FAMPYRA (DALFAMPRIDINE) TABLET, 10MG [Suspect]
     Indication: MULTIPLE SCLEROSIS
     Dosage: 10 MG,BID, ORAL
     Route: 048
     Dates: start: 20120320, end: 20120320

REACTIONS (6)
  - PARAESTHESIA [None]
  - PSYCHOTIC DISORDER [None]
  - PAIN [None]
  - PANIC ATTACK [None]
  - FEAR OF DEATH [None]
  - FEELING ABNORMAL [None]
